FAERS Safety Report 10101961 (Version 1)
Quarter: 2014Q2

REPORT INFORMATION
  Report Type: Spontaneous
  Country: US (occurrence: None)
  Receive Date: 20140423
  Receipt Date: 20140423
  Transmission Date: 20141212
  Serious: No
  Sender: FDA-Public Use
  Company Number: None

PATIENT
  Age: 87 Year
  Sex: Female

DRUGS (6)
  1. OXYBUTYNIN [Suspect]
     Indication: INCONTINENCE
     Route: 048
     Dates: start: 20140315, end: 20140402
  2. WARFARIN [Concomitant]
  3. MULTIVITAMIN [Concomitant]
  4. FENTANYL [Concomitant]
  5. LISINOPRIL [Concomitant]
  6. VITAMIN D [Concomitant]

REACTIONS (2)
  - Lip swelling [None]
  - Swelling face [None]
